FAERS Safety Report 8879697 (Version 2)
Quarter: 2012Q4

REPORT INFORMATION
  Report Type: Report from Study
  Country: US (occurrence: US)
  Receive Date: 20121031
  Receipt Date: 20121207
  Transmission Date: 20130627
  Serious: No
  Sender: FDA-Public Use
  Company Number: US-US-EMD SERONO, INC.-7170403

PATIENT
  Sex: Female

DRUGS (1)
  1. REBIF [Suspect]
     Indication: MULTIPLE SCLEROSIS
     Route: 058
     Dates: start: 20030611

REACTIONS (3)
  - Blood immunoglobulin M increased [Unknown]
  - Blood cholesterol increased [Unknown]
  - Injection site erythema [Not Recovered/Not Resolved]
